FAERS Safety Report 8359780-5 (Version None)
Quarter: 2012Q2

REPORT INFORMATION
  Report Type: 
  Country: None (occurrence: None)
  Receive Date: 20120515
  Receipt Date: 20120508
  Transmission Date: 20120825
  Serious: Yes (Other)
  Sender: FDA-Public Use
  Company Number: PHHY2012FI039490

PATIENT
  Age: 78 Year
  Sex: Female

DRUGS (2)
  1. ONBREZ [Suspect]
     Dosage: 150 UG, UNK
     Dates: start: 20120401
  2. WARFARIN SODIUM [Interacting]

REACTIONS (2)
  - INTERNATIONAL NORMALISED RATIO DECREASED [None]
  - DRUG INTERACTION [None]
